FAERS Safety Report 10585952 (Version 1)
Quarter: 2014Q4

REPORT INFORMATION
  Report Type: Report from Study
  Country: DE (occurrence: CO)
  Receive Date: 20141114
  Receipt Date: 20141114
  Transmission Date: 20150529
  Serious: Yes (Hospitalization)
  Sender: FDA-Public Use
  Company Number: DE-ACTELION-A-US2014-108404

PATIENT
  Age: 22 Year
  Sex: Female

DRUGS (1)
  1. VENTAVIS [Suspect]
     Active Substance: ILOPROST
     Indication: PULMONARY HYPERTENSION
     Dosage: 10 MCG/ML, Q4HR (6 TIMES A DAY)
     Route: 055
     Dates: start: 20121106

REACTIONS (2)
  - Coagulation time abnormal [Unknown]
  - Balloon atrial septostomy [Unknown]
